FAERS Safety Report 8352300-0 (Version None)
Quarter: 2012Q2

REPORT INFORMATION
  Report Type: 
  Country: None (occurrence: None)
  Receive Date: 20120511
  Receipt Date: 20120503
  Transmission Date: 20120825
  Serious: Yes (Life-Threatening, Other)
  Sender: FDA-Public Use
  Company Number: GB-UCBSA-056713

PATIENT
  Age: 49 Year
  Sex: Female

DRUGS (5)
  1. VIMPAT [Suspect]
     Route: 048
  2. LEVETIRACETAM [Concomitant]
  3. CARBAMAZEPINE [Concomitant]
  4. LEVOTHYROXINE SODIUM [Concomitant]
  5. VIMPAT [Suspect]
     Indication: PARTIAL SEIZURES
     Route: 048
     Dates: start: 20100801, end: 20110817

REACTIONS (2)
  - ELECTROCARDIOGRAM ABNORMAL [None]
  - SICK SINUS SYNDROME [None]
